FAERS Safety Report 13841198 (Version 1)
Quarter: 2017Q3

REPORT INFORMATION
  Report Type: Spontaneous
  Country: US (occurrence: US)
  Receive Date: 20170807
  Receipt Date: 20170807
  Transmission Date: 20171127
  Serious: Yes (Hospitalization, Other)
  Sender: FDA-Public Use
  Company Number: US-PFIZER INC-2017340170

PATIENT
  Age: 64 Year
  Sex: Male
  Weight: 168 kg

DRUGS (1)
  1. LYRICA [Suspect]
     Active Substance: PREGABALIN
     Indication: NEUROPATHY PERIPHERAL
     Dosage: 350 MG, 2X/DAY
     Route: 048
     Dates: start: 2016

REACTIONS (6)
  - Overdose [Unknown]
  - Skin infection [Not Recovered/Not Resolved]
  - Asthenia [Unknown]
  - Fall [Recovering/Resolving]
  - Gait inability [Unknown]
  - Skin lesion [Not Recovered/Not Resolved]

NARRATIVE: CASE EVENT DATE: 201703
